FAERS Safety Report 16531052 (Version 3)
Quarter: 2019Q3

REPORT INFORMATION
  Report Type: Spontaneous
  Country: DE (occurrence: DE)
  Receive Date: 20190705
  Receipt Date: 20190830
  Transmission Date: 20191004
  Serious: Yes (Other)
  Sender: FDA-Public Use
  Company Number: DE-AUROBINDO-AUR-APL-2019-037277

PATIENT

DRUGS (16)
  1. LEVETIRACETAM. [Suspect]
     Active Substance: LEVETIRACETAM
     Dosage: UNK
     Route: 063
     Dates: start: 2015
  2. LACOSAMIDE FILM COATED TABLETS [Suspect]
     Active Substance: LACOSAMIDE
     Dosage: 200 MILLIGRAM, ONCE A DAY (100 MG, 2X/DAY (BID)
     Route: 064
     Dates: start: 20141127, end: 2014
  3. LACOSAMIDE FILM COATED TABLETS [Suspect]
     Active Substance: LACOSAMIDE
     Dosage: 100 MG, ONCE DAILY (QD)
     Route: 064
     Dates: start: 2014, end: 20141215
  4. LACOSAMIDE FILM COATED TABLETS [Suspect]
     Active Substance: LACOSAMIDE
     Dosage: 50 MILLIGRAM, TWO TIMES A DAY, 50-0-50
     Route: 064
     Dates: start: 20141216, end: 20141218
  5. PREGABALIN. [Concomitant]
     Active Substance: PREGABALIN
     Dosage: 150-300-300 (TOTAL 750)
     Route: 065
     Dates: start: 2014
  6. LEVETIRACETAM. [Suspect]
     Active Substance: LEVETIRACETAM
     Indication: EPILEPSY
     Dosage: UNK,DOSE INCREASED
     Route: 064
     Dates: start: 2014, end: 2014
  7. LEVETIRACETAM. [Suspect]
     Active Substance: LEVETIRACETAM
     Dosage: 3, ONCE A DAY,1500-500-1500 (TOTAL: 3500 MG), 3X/DAY (TID)
     Route: 065
     Dates: start: 201406
  8. LEVETIRACETAM. [Suspect]
     Active Substance: LEVETIRACETAM
     Dosage: 750 MILLIGRAM, TWO TIMES A DAY
     Route: 064
     Dates: start: 20141127, end: 2014
  9. LEVETIRACETAM. [Suspect]
     Active Substance: LEVETIRACETAM
     Dosage: UNK UNK, ONCE A DAY (4X/DAY (QID) 1000-1000-500-1000)
     Route: 064
     Dates: start: 20141216, end: 20150627
  10. LACOSAMIDE FILM COATED TABLETS [Suspect]
     Active Substance: LACOSAMIDE
     Dosage: 50 MG, 2X/DAY (BID) 50-0-50
     Route: 064
     Dates: start: 20141216, end: 20141218
  11. PREGABALIN. [Concomitant]
     Active Substance: PREGABALIN
     Dosage: TOTAL: 750 (150-150-150-300)
     Route: 064
     Dates: start: 20141216, end: 20150627
  12. PREGABALIN. [Concomitant]
     Active Substance: PREGABALIN
     Dosage: TOTAL: 750 (150-150-150-300)
     Route: 063
     Dates: start: 2015
  13. LEVETIRACETAM. [Suspect]
     Active Substance: LEVETIRACETAM
     Dosage: 1500 MILLIGRAM, TWO TIMES A DAY
     Route: 064
     Dates: start: 20141215, end: 20141215
  14. LACOSAMIDE FILM COATED TABLETS [Suspect]
     Active Substance: LACOSAMIDE
     Indication: EPILEPSY
     Dosage: 100 MILLIGRAM, TWO TIMES A DAY (2X/DAY (BID)
     Route: 064
     Dates: start: 20141127, end: 2014
  15. PREGABALIN. [Concomitant]
     Active Substance: PREGABALIN
     Indication: NEUROPATHY PERIPHERAL
     Dosage: TOTAL: 750  (150-300-300)
     Route: 064
     Dates: end: 20141215
  16. LEVETIRACETAM. [Suspect]
     Active Substance: LEVETIRACETAM
     Dosage: 3000 MILLIGRAM, ONCE A DAY
     Route: 064
     Dates: start: 20141215, end: 20141215

REACTIONS (4)
  - Foetal exposure during pregnancy [Unknown]
  - Premature baby [Unknown]
  - Low birth weight baby [Unknown]
  - Exposure via breast milk [Unknown]

NARRATIVE: CASE EVENT DATE: 20141127
